FAERS Safety Report 8859549 (Version 1)
Quarter: 2012Q4

REPORT INFORMATION
  Report Type: 
  Country: US (occurrence: US)
  Receive Date: 20121025
  Receipt Date: 20121025
  Transmission Date: 20130627
  Serious: Yes (Other)
  Sender: FDA-Public Use
  Company Number: US-JNJFOC-20121011382

PATIENT
  Age: 20 Month
  Sex: Female
  Weight: 9.07 kg

DRUGS (1)
  1. CHILDREN^S BENADRYL ALLERGY CHERRY LIQUID [Suspect]
     Indication: PRURITUS
     Dosage: NDC# 50580-534-04
     Route: 048
     Dates: start: 20120901, end: 20121016

REACTIONS (6)
  - Aggression [Recovered/Resolved]
  - Screaming [Recovered/Resolved]
  - Confusional state [Recovered/Resolved]
  - Agitation [Recovered/Resolved]
  - Drug administered to patient of inappropriate age [Unknown]
  - Off label use [Unknown]
